FAERS Safety Report 8049367-6 (Version None)
Quarter: 2012Q1

REPORT INFORMATION
  Report Type: 
  Country: None (occurrence: None)
  Receive Date: 20120117
  Receipt Date: 20120111
  Transmission Date: 20120608
  Serious: Yes (Other)
  Sender: FDA-Public Use
  Company Number: US-PFIZER INC-2011269754

PATIENT
  Sex: Female
  Weight: 62.132 kg

DRUGS (4)
  1. CHANTIX [Suspect]
     Dosage: 1 MG, 1X/DAY
     Route: 048
     Dates: start: 20111015
  2. CHANTIX [Suspect]
     Indication: SMOKING CESSATION THERAPY
     Dosage: 0.5 MG, 1X/DAY
     Route: 048
     Dates: start: 20110925, end: 20110101
  3. CHANTIX [Suspect]
     Dosage: 1 MG, 2X/DAY
     Route: 048
     Dates: start: 20110101, end: 20111014
  4. CITALOPRAM [Concomitant]
     Indication: DEPRESSION
     Dosage: UNK

REACTIONS (9)
  - DEPRESSION [None]
  - FALL [None]
  - EMOTIONAL DISORDER [None]
  - DECREASED ACTIVITY [None]
  - FEELING ABNORMAL [None]
  - FATIGUE [None]
  - BACK INJURY [None]
  - MENTAL DISORDER [None]
  - APATHY [None]
